FAERS Safety Report 23342478 (Version 1)
Quarter: 2023Q4

REPORT INFORMATION
  Report Type: Spontaneous
  Country: JP (occurrence: JP)
  Receive Date: 20231227
  Receipt Date: 20231227
  Transmission Date: 20240109
  Serious: Yes (Other)
  Sender: FDA-Public Use
  Company Number: JP-PFIZER INC-202300448318

PATIENT
  Age: 6 Decade
  Sex: Female

DRUGS (1)
  1. PACLITAXEL [Suspect]
     Active Substance: PACLITAXEL
     Dosage: UNK
     Dates: start: 20231218

REACTIONS (4)
  - Loss of consciousness [Recovering/Resolving]
  - Photopsia [Unknown]
  - Dyspnoea [Unknown]
  - Erythema [Unknown]
